FAERS Safety Report 23090754 (Version 1)
Quarter: 2023Q4

REPORT INFORMATION
  Report Type: Spontaneous
  Country: US (occurrence: US)
  Receive Date: 20231020
  Receipt Date: 20231020
  Transmission Date: 20240110
  Serious: No
  Sender: FDA-Public Use
  Company Number: US-PFIZER INC-PV202300172038

PATIENT
  Age: 33 Year
  Sex: Female

DRUGS (2)
  1. CLINDAMYCIN PHOSPHATE [Suspect]
     Active Substance: CLINDAMYCIN PHOSPHATE
     Dosage: UNK
  2. SULFACETAMIDE [Suspect]
     Active Substance: SULFACETAMIDE
     Dosage: UNK
     Route: 061

REACTIONS (5)
  - Hypersensitivity [Unknown]
  - Rash pruritic [Unknown]
  - Rash erythematous [Unknown]
  - Dermatitis contact [Unknown]
  - Eczema [Unknown]
